FAERS Safety Report 7423283 (Version 3)
Quarter: 2013Q2

REPORT INFORMATION
  Report Type: Spontaneous
  Country: US (occurrence: US)
  Receive Date: 20100617
  Receipt Date: 20120709
  Transmission Date: 20140414
  Serious: Yes (Hospitalization)
  Sender: FDA-Public Use
  Company Number: PHHY2010US36622

PATIENT
  Age: 66 Year
  Sex: Male

DRUGS (2)
  1. GLEEVEC (IMATINIB) UNKNOWN [Suspect]
     Indication: GASTRIC CANCER
     Dosage: 600 MG, PER DAY
     Route: 048
     Dates: start: 2006
  2. GLEEVEC (IMATINIB) UNKNOWN [Suspect]
     Dosage: 600 MG, PER DAY
     Route: 048
     Dates: start: 2006

REACTIONS (3)
  - PERFORATED ULCER [Recovering/Resolving]
  - SURGERY [Recovering/Resolving]
  - FATIGUE [Recovering/Resolving]
